FAERS Safety Report 5744037-9 (Version None)
Quarter: 2008Q2

REPORT INFORMATION
  Report Type: 
  Country: None (occurrence: None)
  Receive Date: 20080516
  Receipt Date: 20080516
  Transmission Date: 20081010
  Serious: No
  Sender: FDA-Public Use
  Company Number: None

PATIENT
  Age: 54 Year
  Sex: Female
  Weight: 118.3888 kg

DRUGS (1)
  1. CHANTIX [Suspect]
     Indication: SMOKING CESSATION THERAPY
     Dosage: 1 MG 2X DAILY PO
     Route: 048
     Dates: start: 20080318, end: 20080428

REACTIONS (10)
  - ABDOMINAL PAIN [None]
  - ABDOMINAL PAIN UPPER [None]
  - DYSPHAGIA [None]
  - GASTROOESOPHAGEAL REFLUX DISEASE [None]
  - MEDIASTINAL DISORDER [None]
  - OESOPHAGITIS [None]
  - PAIN [None]
  - PSYCHOTIC DISORDER [None]
  - THINKING ABNORMAL [None]
  - VOMITING [None]
